FAERS Safety Report 7681148-5 (Version None)
Quarter: 2011Q3

REPORT INFORMATION
  Report Type: 
  Country: None (occurrence: None)
  Receive Date: 20110812
  Receipt Date: 20110810
  Transmission Date: 20111222
  Serious: Yes (Other)
  Sender: FDA-Public Use
  Company Number: US-PFIZER INC-2011184070

PATIENT
  Sex: Male
  Weight: 81.633 kg

DRUGS (3)
  1. XANAX [Concomitant]
     Dosage: UNK, 2X/DAY
  2. DILANTIN [Suspect]
     Indication: EPILEPSY
     Dosage: 100 MG, 3X/DAY
     Route: 048
     Dates: end: 20110601
  3. DILANTIN [Suspect]
     Dosage: 300 MG, 2X/DAY
     Route: 048
     Dates: start: 20110601

REACTIONS (2)
  - CONVULSION [None]
  - DRUG LEVEL INCREASED [None]
